FAERS Safety Report 15425197 (Version 1)
Quarter: 2018Q3

REPORT INFORMATION
  Report Type: Spontaneous
  Country: US (occurrence: US)
  Receive Date: 20180925
  Receipt Date: 20180925
  Transmission Date: 20181010
  Serious: No
  Sender: FDA-Public Use
  Company Number: US-BIOVITRUM-2018US0442

PATIENT
  Sex: Male
  Weight: 2.94 kg

DRUGS (4)
  1. PREDNISONE. [Concomitant]
     Active Substance: PREDNISONE
     Dosage: 18.6?19.9 WEEKS
     Route: 064
  2. DULOXETINE. [Concomitant]
     Active Substance: DULOXETINE
     Route: 064
  3. PREDNISONE. [Concomitant]
     Active Substance: PREDNISONE
     Dosage: 20?27.6 WEEKS
     Route: 064
  4. ANAKINRA [Suspect]
     Active Substance: ANAKINRA
     Indication: STILL^S DISEASE
     Route: 064

REACTIONS (2)
  - Foetal exposure during pregnancy [Recovered/Resolved]
  - Jaundice neonatal [Unknown]
